FAERS Safety Report 8048671-5 (Version None)
Quarter: 2012Q1

REPORT INFORMATION
  Report Type: 
  Country: None (occurrence: None)
  Receive Date: 20120117
  Receipt Date: 20120110
  Transmission Date: 20120608
  Serious: No
  Sender: FDA-Public Use
  Company Number: US-B.I. PHARMACEUTICALS,INC./RIDGEFIELD-2012-BP-00742BP

PATIENT
  Age: 62 Year
  Sex: Male

DRUGS (5)
  1. TRADJENTA [Suspect]
     Dates: start: 20111122
  2. NOVOLIN 70/30 [Concomitant]
  3. BYETTA [Concomitant]
  4. METFORMIN HCL [Concomitant]
  5. LANTUS [Concomitant]

REACTIONS (1)
  - DRUG INEFFECTIVE [None]
